FAERS Safety Report 7339727-0 (Version None)
Quarter: 2011Q1

REPORT INFORMATION
  Report Type: 
  Country: None (occurrence: None)
  Receive Date: 20110309
  Receipt Date: 20110224
  Transmission Date: 20110831
  Serious: Yes (Hospitalization, Other)
  Sender: FDA-Public Use
  Company Number: ES-ELI_LILLY_AND_COMPANY-ES201102006969

PATIENT
  Sex: Female

DRUGS (3)
  1. FORTEO [Suspect]
     Indication: OSTEOPOROSIS
     Dosage: 20 UG, DAILY (1/D)
     Route: 058
     Dates: start: 20091023
  2. OMEPRAZOLE [Concomitant]
     Indication: GASTRIC DISORDER
     Dosage: 1 D/F, DAILY (1/D)
     Route: 048
  3. SINTROM [Concomitant]
     Indication: DEEP VEIN THROMBOSIS
     Dosage: 1 D/F, DAILY (1/D)
     Route: 048

REACTIONS (7)
  - ASTHMA [None]
  - PYREXIA [None]
  - BLOOD PRESSURE INCREASED [None]
  - NASOPHARYNGITIS [None]
  - PNEUMONIA [None]
  - DIARRHOEA [None]
  - RESPIRATORY FAILURE [None]
